FAERS Safety Report 7815202-1 (Version None)
Quarter: 2011Q4

REPORT INFORMATION
  Report Type: 
  Country: None (occurrence: None)
  Receive Date: 20111014
  Receipt Date: 20111011
  Transmission Date: 20120403
  Serious: Yes (Death, Life-Threatening, Other)
  Sender: FDA-Public Use
  Company Number: JP-CEPHALON-2011004753

PATIENT
  Sex: Female
  Weight: 40 kg

DRUGS (5)
  1. BENDAMUSTINE HCL [Suspect]
     Route: 042
     Dates: start: 20110728, end: 20110728
  2. CLADRIBINE [Concomitant]
  3. METHYLPREDNISOLONE SODIUM SUCCINATE [Concomitant]
     Dates: start: 20110726, end: 20110726
  4. BENDAMUSTINE HCL [Suspect]
     Indication: HAIRY CELL LEUKAEMIA
     Route: 042
     Dates: start: 20110727, end: 20110727
  5. HYDROCORTISONE SODIUM SUCCINATE [Concomitant]
     Dates: start: 20110811, end: 20110811

REACTIONS (5)
  - PANCYTOPENIA [None]
  - CYTOMEGALOVIRUS INFECTION [None]
  - FEBRILE NEUTROPENIA [None]
  - GASTROINTESTINAL HAEMORRHAGE [None]
  - PNEUMONIA [None]
